FAERS Safety Report 16825102 (Version 3)
Quarter: 2019Q4

REPORT INFORMATION
  Report Type: Report from Study
  Country: US (occurrence: US)
  Receive Date: 20190919
  Receipt Date: 20191127
  Transmission Date: 20200122
  Serious: Yes (Life-Threatening)
  Sender: FDA-Public Use
  Company Number: PHHY2019US217250

PATIENT
  Age: 4 Year
  Sex: Male

DRUGS (1)
  1. FARYDAK [Suspect]
     Active Substance: PANOBINOSTAT
     Indication: ADRENAL GLAND CANCER
     Dosage: 10 MG, UNK
     Route: 048
     Dates: start: 20190821, end: 20191122

REACTIONS (4)
  - Gastroenteritis viral [Recovered/Resolved]
  - Disease progression [Unknown]
  - Product administered to patient of inappropriate age [Unknown]
  - Off label use [Unknown]

NARRATIVE: CASE EVENT DATE: 20190823
